FAERS Safety Report 8837692 (Version 1)
Quarter: 2012Q4

REPORT INFORMATION
  Report Type: 
  Country: BR (occurrence: BR)
  Receive Date: 20121012
  Receipt Date: 20121012
  Transmission Date: 20130627
  Serious: Yes (Hospitalization)
  Sender: FDA-Public Use
  Company Number: PHHY2012BR089556

PATIENT
  Sex: Female

DRUGS (2)
  1. TRILEPTAL [Suspect]
     Indication: EPILEPSY
     Dosage: 300 mg, BID
     Route: 048
  2. TRILEPTAL [Suspect]
     Dosage: 600 mg, UNK
     Route: 048

REACTIONS (3)
  - Facial bones fracture [Recovering/Resolving]
  - Swelling face [Unknown]
  - Convulsion [Recovering/Resolving]
